FAERS Safety Report 8462436-1 (Version None)
Quarter: 2012Q2

REPORT INFORMATION
  Report Type: 
  Country: None (occurrence: None)
  Receive Date: 20120625
  Receipt Date: 20120620
  Transmission Date: 20120825
  Serious: Yes (Hospitalization, Disabling, Other)
  Sender: FDA-Public Use
  Company Number: US-PFIZER INC-2012009473

PATIENT
  Sex: Male

DRUGS (8)
  1. CHANTIX [Suspect]
     Indication: SMOKING CESSATION THERAPY
     Dosage: STARTER PACK
     Dates: start: 20091201, end: 20100112
  2. POLYETHYLENE GLYCOL [Concomitant]
     Indication: GASTRIC DISORDER
     Dosage: UNK
     Dates: start: 19990101, end: 20110101
  3. HYDROCORTISONE [Concomitant]
     Indication: MUSCULOSKELETAL PAIN
     Dosage: UNK
     Dates: start: 19990101
  4. DICYCLOMINE [Concomitant]
     Indication: GASTRIC DISORDER
     Dosage: UNK
     Dates: start: 19990101, end: 20110101
  5. METHOCARBAMOL [Concomitant]
     Indication: MUSCULOSKELETAL PAIN
     Dosage: UNK
     Dates: start: 19990101
  6. PANTOPRAZOLE [Concomitant]
     Indication: GASTRIC DISORDER
     Dosage: UNK
     Dates: start: 19990101
  7. PROMETHAZINE [Concomitant]
     Indication: MUSCULOSKELETAL PAIN
     Dosage: UNK
     Dates: start: 19990101
  8. NAPROXEN [Concomitant]
     Indication: MUSCULOSKELETAL PAIN
     Dosage: UNK
     Dates: start: 19990101

REACTIONS (5)
  - MIGRAINE [None]
  - CONVULSION [None]
  - HYPOAESTHESIA [None]
  - MUSCULAR WEAKNESS [None]
  - VISUAL ACUITY REDUCED [None]
